FAERS Safety Report 15549516 (Version 2)
Quarter: 2018Q4

REPORT INFORMATION
  Report Type: Spontaneous
  Country: US (occurrence: US)
  Receive Date: 20181025
  Receipt Date: 20181031
  Transmission Date: 20190205
  Serious: No
  Sender: FDA-Public Use
  Company Number: US-PFIZER INC-2018432889

PATIENT
  Age: 71 Year
  Sex: Female
  Weight: 72.56 kg

DRUGS (2)
  1. SUTENT [Suspect]
     Active Substance: SUNITINIB MALATE
     Indication: METASTASIS
     Dosage: 37.5 MG, CYCLIC  (12.5MG CAPSULE BY MOUTH THREE A DAY)
     Route: 048
     Dates: start: 201802
  2. SUTENT [Suspect]
     Active Substance: SUNITINIB MALATE
     Dosage: UNK, CYCLIC: FOR 3 WEEKS, THEN OFF FOR 1 WEEK

REACTIONS (7)
  - Fatigue [Recovered/Resolved]
  - Rash [Recovered/Resolved]
  - Haemorrhoids [Recovered/Resolved]
  - Oral discomfort [Recovered/Resolved]
  - Hypertension [Recovered/Resolved]
  - Asthenia [Recovered/Resolved]
  - Dizziness [Recovered/Resolved]

NARRATIVE: CASE EVENT DATE: 2018
